FAERS Safety Report 9867570 (Version 2)
Quarter: 2014Q2

REPORT INFORMATION
  Report Type: Spontaneous
  Country: US (occurrence: US)
  Receive Date: 20140204
  Receipt Date: 20140429
  Transmission Date: 20141212
  Serious: Yes (Other)
  Sender: FDA-Public Use
  Company Number: US-NOVOPROD-398987

PATIENT
  Age: 66 Year
  Sex: Female
  Weight: 63.04 kg

DRUGS (7)
  1. VICTOZA [Suspect]
     Indication: TYPE 2 DIABETES MELLITUS
     Dosage: 1.2 MG DAILY
     Route: 058
     Dates: start: 20140118, end: 20140118
  2. VICTOZA [Suspect]
     Dosage: 1.2 MG, QD
     Route: 058
     Dates: start: 20140120, end: 20140120
  3. ACARBOSE [Concomitant]
     Indication: TYPE 2 DIABETES MELLITUS
     Dosage: 100 MG, UNK
     Dates: start: 2011
  4. METFORMIN [Concomitant]
     Indication: TYPE 2 DIABETES MELLITUS
  5. NATEGLINIDE [Concomitant]
     Indication: TYPE 2 DIABETES MELLITUS
  6. LIPITOR [Concomitant]
     Indication: PRODUCT USED FOR UNKNOWN INDICATION
     Dosage: 20 MG, UNK
     Route: 048
     Dates: start: 20110709
  7. GLUCOPHAGE [Concomitant]
     Indication: PRODUCT USED FOR UNKNOWN INDICATION
     Dosage: 1000 MG, UNK
     Route: 048
     Dates: start: 20030716

REACTIONS (1)
  - Drug hypersensitivity [Recovered/Resolved]
